FAERS Safety Report 19176202 (Version 7)
Quarter: 2024Q2

REPORT INFORMATION
  Report Type: Report from Study
  Country: AR (occurrence: AR)
  Receive Date: 20210424
  Receipt Date: 20240423
  Transmission Date: 20240716
  Serious: Yes (Other)
  Sender: FDA-Public Use
  Company Number: NVSC2021AR083825

PATIENT
  Age: 28 Year
  Sex: Female

DRUGS (4)
  1. GILENYA [Suspect]
     Active Substance: FINGOLIMOD HYDROCHLORIDE
     Indication: Multiple sclerosis
     Dosage: 0.5 MG, QD, (BY MOUTH)
     Route: 048
     Dates: start: 20190628
  2. GILENYA [Suspect]
     Active Substance: FINGOLIMOD HYDROCHLORIDE
     Dosage: 1 DOSAGE FORM, QD (PILL)
     Route: 048
     Dates: end: 20230501
  3. BACLOFEN [Suspect]
     Active Substance: BACLOFEN
     Indication: Product used for unknown indication
     Dosage: 1 DF (AT NIGHT)
     Route: 065
  4. NAPROXEN [Suspect]
     Active Substance: NAPROXEN
     Indication: Product used for unknown indication
     Dosage: UNK
     Route: 065

REACTIONS (20)
  - Noninfective encephalitis [Unknown]
  - Multiple sclerosis relapse [Unknown]
  - Brain injury [Unknown]
  - Neuropathy peripheral [Unknown]
  - Optic neuritis [Unknown]
  - Eye inflammation [Not Recovered/Not Resolved]
  - Hypotension [Unknown]
  - Nystagmus [Recovering/Resolving]
  - Eye swelling [Unknown]
  - Visual impairment [Not Recovered/Not Resolved]
  - Photophobia [Recovered/Resolved]
  - Eye disorder [Recovering/Resolving]
  - Conjunctivitis [Unknown]
  - Eye pain [Not Recovered/Not Resolved]
  - Memory impairment [Unknown]
  - Eye infection [Not Recovered/Not Resolved]
  - Headache [Not Recovered/Not Resolved]
  - Infection [Unknown]
  - Product dose omission issue [Unknown]
  - Drug ineffective [Unknown]

NARRATIVE: CASE EVENT DATE: 20210401
